FAERS Safety Report 7237989 (Version 5)
Quarter: 2013Q1

REPORT INFORMATION
  Report Type: Report from Study
  Country: US (occurrence: US)
  Receive Date: 20100106
  Receipt Date: 20130110
  Transmission Date: 20140127
  Serious: Yes (Hospitalization, Other)
  Sender: FDA-Public Use
  Company Number: US-ROCHE-677403

PATIENT
  Age: 48 Year
  Sex: Female
  Weight: 63.5 kg

DRUGS (2)
  1. CAPECITABINE [Suspect]
     Indication: BREAST CANCER
     Route: 048
  2. CAPECITABINE [Suspect]
     Dosage: 2000 MG AM/1500 MG PM
     Route: 048

REACTIONS (13)
  - Haematemesis [Unknown]
  - Pleuritic pain [Unknown]
  - Bone pain [Unknown]
  - Malignant neoplasm progression [Not Recovered/Not Resolved]
  - Dry skin [Unknown]
  - Pain in extremity [Unknown]
  - Gait disturbance [Unknown]
  - Oral mucosal blistering [Unknown]
  - Diarrhoea [Not Recovered/Not Resolved]
  - Constipation [Unknown]
  - Haematochezia [Unknown]
  - Depression [Unknown]
  - Fatigue [Unknown]
